FAERS Safety Report 9767026 (Version 1)
Quarter: 2013Q4

REPORT INFORMATION
  Report Type: Spontaneous
  Country: US (occurrence: US)
  Receive Date: 20131217
  Receipt Date: 20131217
  Transmission Date: 20140711
  Serious: No
  Sender: FDA-Public Use
  Company Number: US-GLAXOSMITHKLINE-A1037013A

PATIENT
  Age: 55 Year
  Sex: Female

DRUGS (2)
  1. VOTRIENT [Suspect]
     Indication: RENAL CELL CARCINOMA
     Dosage: 400MG SINGLE DOSE
     Route: 048
     Dates: start: 20130808
  2. NO CONCURRENT MEDICATION [Concomitant]

REACTIONS (1)
  - Underdose [Unknown]
